FAERS Safety Report 5563822-X (Version None)
Quarter: 2007Q4

REPORT INFORMATION
  Report Type: 
  Country: None (occurrence: None)
  Receive Date: 20071217
  Receipt Date: 20070831
  Transmission Date: 20080405
  Serious: No
  Sender: FDA-Public Use
  Company Number: CA-ASTRAZENECA-2007UW20775

PATIENT
  Sex: Female

DRUGS (1)
  1. CRESTOR [Suspect]
     Route: 048

REACTIONS (2)
  - PAIN [None]
  - SWELLING [None]
